FAERS Safety Report 8163700-6 (Version None)
Quarter: 2012Q1

REPORT INFORMATION
  Report Type: 
  Country: None (occurrence: None)
  Receive Date: 20120224
  Receipt Date: 20120213
  Transmission Date: 20120608
  Serious: Yes (Other)
  Sender: FDA-Public Use
  Company Number: PHHY2012DE012635

PATIENT
  Sex: Male

DRUGS (8)
  1. SIMVASTATIN [Concomitant]
  2. METFORMIN HCL [Concomitant]
  3. ZOMETA [Suspect]
     Indication: METASTASES TO BONE
     Dosage: UNK UKN, UNK
     Route: 042
     Dates: start: 20120209
  4. ZENTROPIL [Concomitant]
  5. RAMIPRIL [Concomitant]
  6. PIRAZEPAM [Concomitant]
  7. METOPROLOL TARTRATE AND HYDROCHLOROTHIAZIDE [Concomitant]
  8. FUROSEMIDE [Concomitant]

REACTIONS (12)
  - VERTIGO [None]
  - TREMOR [None]
  - WEIGHT DECREASED [None]
  - DIZZINESS [None]
  - CHILLS [None]
  - PANIC DISORDER [None]
  - NAUSEA [None]
  - MEMORY IMPAIRMENT [None]
  - FALL [None]
  - LOSS OF CONSCIOUSNESS [None]
  - BACK DISORDER [None]
  - VOMITING [None]
